FAERS Safety Report 6056704-0 (Version None)
Quarter: 2009Q1

REPORT INFORMATION
  Report Type: 
  Country: None (occurrence: None)
  Receive Date: 20090129
  Receipt Date: 20080620
  Transmission Date: 20090719
  Serious: No
  Sender: FDA-Public Use
  Company Number: A0734162A

PATIENT
  Age: 26 Year
  Sex: Male

DRUGS (4)
  1. EPIVIR [Suspect]
     Indication: HIV INFECTION
     Dosage: 300MG PER DAY
     Route: 048
     Dates: start: 20080522
  2. INVIRASE [Concomitant]
  3. NORVIR [Concomitant]
  4. VIREAD [Concomitant]

REACTIONS (2)
  - BLOOD CREATINE PHOSPHOKINASE INCREASED [None]
  - BLOOD CREATININE INCREASED [None]
